FAERS Safety Report 10447563 (Version 2)
Quarter: 2014Q4

REPORT INFORMATION
  Report Type: Report from Study
  Country: BR (occurrence: BR)
  Receive Date: 20140911
  Receipt Date: 20141203
  Transmission Date: 20150528
  Serious: Yes (Death, Other)
  Sender: FDA-Public Use
  Company Number: PHHY2014BR117402

PATIENT
  Sex: Female
  Weight: 70 kg

DRUGS (1)
  1. TRILEPTAL [Suspect]
     Active Substance: OXCARBAZEPINE
     Indication: PRODUCT USED FOR UNKNOWN INDICATION
     Dosage: 1 DF (TABLET), QD
     Route: 048
     Dates: start: 2008

REACTIONS (1)
  - Malignant muscle neoplasm [Fatal]

NARRATIVE: CASE EVENT DATE: 2011
